FAERS Safety Report 20367752 (Version 1)
Quarter: 2022Q1

REPORT INFORMATION
  Report Type: Spontaneous
  Country: SA (occurrence: SA)
  Receive Date: 20220124
  Receipt Date: 20220124
  Transmission Date: 20220423
  Serious: Yes (Hospitalization, Other)
  Sender: FDA-Public Use
  Company Number: SA-AMGEN-SAUSP2022007146

PATIENT
  Age: 54 Year
  Sex: Male

DRUGS (1)
  1. XGEVA [Suspect]
     Active Substance: DENOSUMAB
     Indication: Hypercalcaemia of malignancy
     Dosage: UNK
     Route: 065

REACTIONS (8)
  - Tumour lysis syndrome [Unknown]
  - Pleural effusion [Unknown]
  - Atelectasis [Unknown]
  - Anisocytosis [Unknown]
  - Arteriovenous fistula thrombosis [Unknown]
  - Hypoglycaemia [Recovered/Resolved]
  - Blood thyroid stimulating hormone increased [Unknown]
  - Nutritional condition abnormal [Unknown]
